FAERS Safety Report 4323411-1 (Version None)
Quarter: 2004Q1

REPORT INFORMATION
  Report Type: 
  Country: None (occurrence: None)
  Receive Date: 20040325
  Receipt Date: 20040315
  Transmission Date: 20041129
  Serious: Yes (Death)
  Sender: FDA-Public Use
  Company Number: JP-GLAXOSMITHKLINE-B0327082A

PATIENT
  Age: 25 Year
  Sex: Male

DRUGS (1)
  1. ALKERAN [Suspect]
     Dosage: 160MG PER DAY
     Route: 042
     Dates: start: 20040302

REACTIONS (2)
  - ILEUS [None]
  - SEPTIC SHOCK [None]
